FAERS Safety Report 7959389-9 (Version None)
Quarter: 2011Q4

REPORT INFORMATION
  Report Type: 
  Country: None (occurrence: None)
  Receive Date: 20111206
  Receipt Date: 20111202
  Transmission Date: 20120403
  Serious: No
  Sender: FDA-Public Use
  Company Number: US-TEVA-312220USA

PATIENT
  Sex: Female
  Weight: 56.75 kg

DRUGS (5)
  1. ZOLOFT [Concomitant]
     Indication: ANXIETY
     Route: 048
  2. ALDACTONE [Concomitant]
     Indication: ACNE
     Route: 048
  3. AMBIEN [Concomitant]
     Indication: SLEEP DISORDER
     Route: 048
  4. XANAX [Concomitant]
     Indication: ANXIETY
     Route: 048
  5. PLAN B ONE-STEP [Suspect]
     Indication: POST COITAL CONTRACEPTION
     Dosage: 1.5 MILLIGRAM;
     Route: 048
     Dates: start: 20111127, end: 20111127

REACTIONS (1)
  - MENSTRUATION IRREGULAR [None]
